FAERS Safety Report 8163686-4 (Version None)
Quarter: 2012Q1

REPORT INFORMATION
  Report Type: 
  Country: None (occurrence: None)
  Receive Date: 20120224
  Receipt Date: 20120220
  Transmission Date: 20120608
  Serious: Yes (Death)
  Sender: FDA-Public Use
  Company Number: JP-B.I. PHARMACEUTICALS,INC./RIDGEFIELD-2012-BP-03492NB

PATIENT
  Age: 78 Year
  Sex: Male

DRUGS (4)
  1. LANSOPRAZOLE [Concomitant]
     Dosage: 15 MG
     Route: 048
     Dates: start: 20110406
  2. PURSENNID [Concomitant]
     Route: 048
  3. PRADAXA [Suspect]
     Indication: ATRIAL FIBRILLATION
     Dosage: 220 MG
     Route: 048
     Dates: start: 20110406, end: 20110416
  4. MORPHINE [Concomitant]
     Route: 048

REACTIONS (2)
  - ACTIVATED PARTIAL THROMBOPLASTIN TIME PROLONGED [None]
  - GASTRIC CANCER [None]
